FAERS Safety Report 7269277-1 (Version None)
Quarter: 2011Q1

REPORT INFORMATION
  Report Type: 
  Country: None (occurrence: None)
  Receive Date: 20110202
  Receipt Date: 20110125
  Transmission Date: 20110831
  Serious: Yes (Hospitalization, Other)
  Sender: FDA-Public Use
  Company Number: GB-JNJFOC-20101106244

PATIENT
  Sex: Female

DRUGS (5)
  1. RISPERDAL CONSTA [Suspect]
     Route: 030
  2. RISPERDAL CONSTA [Suspect]
     Route: 030
  3. RISPERDAL CONSTA [Suspect]
     Route: 030
  4. RISPERDAL CONSTA [Suspect]
     Indication: BIPOLAR DISORDER
     Route: 030
  5. CLOZARIL [Concomitant]
     Indication: ILL-DEFINED DISORDER
     Route: 065

REACTIONS (6)
  - CONVULSION [None]
  - ACTIVITIES OF DAILY LIVING IMPAIRED [None]
  - SEROTONIN SYNDROME [None]
  - COMA [None]
  - OVERDOSE [None]
  - SPEECH DISORDER [None]
